FAERS Safety Report 13269100 (Version 7)
Quarter: 2018Q4

REPORT INFORMATION
  Report Type: Report from Study
  Country: US (occurrence: US)
  Receive Date: 20170224
  Receipt Date: 20181024
  Transmission Date: 20190204
  Serious: Yes (Other)
  Sender: FDA-Public Use
  Company Number: US-PFIZER INC-2016589803

PATIENT
  Age: 75 Year
  Sex: Female

DRUGS (3)
  1. IBRANCE [Suspect]
     Active Substance: PALBOCICLIB
     Dosage: 125 MG, DAILY
     Route: 048
     Dates: start: 20170528
  2. IBRANCE [Suspect]
     Active Substance: PALBOCICLIB
     Dosage: 100 MG, UNK
     Dates: end: 20180925
  3. IBRANCE [Suspect]
     Active Substance: PALBOCICLIB
     Indication: BREAST CANCER
     Dosage: 125 MG, DAILY
     Route: 048
     Dates: start: 20161205, end: 20170514

REACTIONS (14)
  - Renal impairment [Unknown]
  - Nausea [Unknown]
  - Anaemia [Unknown]
  - Blood creatinine decreased [Unknown]
  - Hypotension [Not Recovered/Not Resolved]
  - Dysgeusia [Not Recovered/Not Resolved]
  - Leukopenia [Not Recovered/Not Resolved]
  - Constipation [Not Recovered/Not Resolved]
  - Bone marrow failure [Not Recovered/Not Resolved]
  - Epistaxis [Not Recovered/Not Resolved]
  - Nasal dryness [Unknown]
  - Dizziness [Recovered/Resolved]
  - Myalgia [Unknown]
  - Head discomfort [Unknown]
